FAERS Safety Report 13531864 (Version 5)
Quarter: 2017Q3

REPORT INFORMATION
  Report Type: Spontaneous
  Country: GB (occurrence: GB)
  Receive Date: 20170510
  Receipt Date: 20170815
  Transmission Date: 20171127
  Serious: Yes (Other)
  Sender: FDA-Public Use
  Company Number: GB-AMGEN-GBRSP2017062372

PATIENT
  Age: 62 Year
  Sex: Female

DRUGS (1)
  1. ENBREL [Suspect]
     Active Substance: ETANERCEPT
     Indication: PRODUCT USED FOR UNKNOWN INDICATION
     Dosage: 50 MG, WEEKLY
     Route: 058
     Dates: end: 20170713

REACTIONS (7)
  - Influenza like illness [Unknown]
  - Injection site swelling [Unknown]
  - Injection site rash [Unknown]
  - Pain [Not Recovered/Not Resolved]
  - Cellulitis [Unknown]
  - Pain in extremity [Unknown]
  - Injection site erythema [Unknown]

NARRATIVE: CASE EVENT DATE: 20170428
